FAERS Safety Report 5087242-X (Version None)
Quarter: 2006Q3

REPORT INFORMATION
  Report Type: 
  Country: None (occurrence: None)
  Receive Date: 20060824
  Receipt Date: 20060816
  Transmission Date: 20061208
  Serious: Yes (Hospitalization, Other)
  Sender: FDA-Public Use
  Company Number: PHFR2006GB02595

PATIENT
  Age: 82 Year
  Sex: Female

DRUGS (10)
  1. LIORESAL [Suspect]
     Dosage: 5 MG, TID
     Route: 048
     Dates: start: 20060126, end: 20060201
  2. ATORVASTATIN CALCIUM [Concomitant]
     Route: 048
  3. CARVEDILOL [Concomitant]
     Route: 048
  4. DIGOXIN [Concomitant]
     Route: 048
  5. FUROSEMIDE [Concomitant]
     Route: 048
  6. LEVOTHYROXINE SODIUM [Concomitant]
     Route: 048
  7. OXYCODONE HCL [Concomitant]
     Route: 048
  8. ACETAMINOPHEN [Concomitant]
     Route: 048
  9. RAMIPRIL [Concomitant]
     Route: 048
  10. SENNA [Concomitant]
     Route: 048

REACTIONS (9)
  - CONFUSIONAL STATE [None]
  - EMOTIONAL DISTRESS [None]
  - HALLUCINATION [None]
  - MOANING [None]
  - NIGHTMARE [None]
  - SOLILOQUY [None]
  - SOMNOLENCE [None]
  - TEARFULNESS [None]
  - UNRESPONSIVE TO STIMULI [None]
